FAERS Safety Report 13978248 (Version 1)
Quarter: 2017Q3

REPORT INFORMATION
  Report Type: Report from Study
  Country: US (occurrence: US)
  Receive Date: 20170915
  Receipt Date: 20170915
  Transmission Date: 20171128
  Serious: Yes (Other)
  Sender: FDA-Public Use
  Company Number: US-BAYER-2017-043486

PATIENT
  Age: 68 Year
  Sex: Female

DRUGS (6)
  1. ADEMPAS [Suspect]
     Active Substance: RIOCIGUAT
     Indication: PULMONARY ARTERIAL HYPERTENSION
     Dosage: 1 MG, TID
     Route: 048
  2. ADEMPAS [Suspect]
     Active Substance: RIOCIGUAT
     Indication: PULMONARY ARTERIAL HYPERTENSION
     Dosage: 1.5 MG, TID
     Route: 048
  3. ADEMPAS [Suspect]
     Active Substance: RIOCIGUAT
     Indication: PULMONARY ARTERIAL HYPERTENSION
     Dosage: 1 MG, TID
     Route: 048
     Dates: start: 20170530
  4. ADEMPAS [Suspect]
     Active Substance: RIOCIGUAT
     Indication: PULMONARY ARTERIAL HYPERTENSION
     Dosage: 0.5 MG, TID
     Route: 048
     Dates: start: 20170216
  5. ADEMPAS [Suspect]
     Active Substance: RIOCIGUAT
     Indication: PULMONARY ARTERIAL HYPERTENSION
     Dosage: 1 MG, TID
     Route: 048
     Dates: start: 20170602
  6. ADEMPAS [Suspect]
     Active Substance: RIOCIGUAT
     Indication: PULMONARY ARTERIAL HYPERTENSION
     Dosage: 1 MG, TID
     Route: 048
     Dates: start: 20170217

REACTIONS (24)
  - Increased viscosity of bronchial secretion [Recovering/Resolving]
  - Sputum discoloured [None]
  - Gastritis fungal [None]
  - Epistaxis [None]
  - Headache [Not Recovered/Not Resolved]
  - Alopecia [Not Recovered/Not Resolved]
  - Pain in extremity [None]
  - Increased viscosity of bronchial secretion [None]
  - Haemoptysis [None]
  - Headache [None]
  - Epistaxis [Recovered/Resolved]
  - Dizziness [None]
  - Haemoptysis [Not Recovered/Not Resolved]
  - Gastrooesophageal reflux disease [None]
  - Feeling abnormal [None]
  - Rales [None]
  - Abdominal distension [None]
  - Increased viscosity of bronchial secretion [None]
  - Peripheral swelling [None]
  - Pneumonia [None]
  - Headache [None]
  - Blood pressure diastolic decreased [None]
  - Oral fungal infection [None]
  - Productive cough [None]

NARRATIVE: CASE EVENT DATE: 2017
